FAERS Safety Report 24759527 (Version 2)
Quarter: 2025Q1

REPORT INFORMATION
  Report Type: Spontaneous
  Country: US (occurrence: US)
  Receive Date: 20241220
  Receipt Date: 20250321
  Transmission Date: 20250408
  Serious: No
  Sender: BRAEBURN PHARMACEUTICALS
  Company Number: US-BRAEBURN-US-BRA-24-001080

PATIENT
  Age: 30 Year
  Sex: Female

DRUGS (1)
  1. BRIXADI [Suspect]
     Active Substance: BUPRENORPHINE
     Indication: Drug use disorder
     Route: 058
     Dates: start: 20241009, end: 20241025

REACTIONS (4)
  - Therapeutic response shortened [Unknown]
  - Withdrawal syndrome [Recovered/Resolved]
  - Rubber sensitivity [Recovered/Resolved]
  - Urticaria [Recovered/Resolved]

NARRATIVE: CASE EVENT DATE: 20241025
